FAERS Safety Report 9797515 (Version 1)
Quarter: 2014Q1

REPORT INFORMATION
  Report Type: Spontaneous
  Country: US (occurrence: None)
  Receive Date: 20140102
  Receipt Date: 20140102
  Transmission Date: 20141002
  Serious: Yes (Death, Life-Threatening, Hospitalization, Disabling)
  Sender: FDA-Public Use
  Company Number: None

PATIENT
  Age: 73 Year
  Sex: Female

DRUGS (2)
  1. METFORMIN 1000 MG [Suspect]
     Indication: DIABETES MELLITUS
     Dosage: 1 PILL CRUSHED, PEG TUBE
  2. IV CONTRAST FOR CT [Concomitant]

REACTIONS (4)
  - Electrocardiogram P wave abnormal [None]
  - Electrocardiogram T wave peaked [None]
  - Blood potassium increased [None]
  - Dialysis [None]
